FAERS Safety Report 23182974 (Version 3)
Quarter: 2023Q4

REPORT INFORMATION
  Report Type: Spontaneous
  Country: US (occurrence: US)
  Receive Date: 20231114
  Receipt Date: 20231229
  Transmission Date: 20240110
  Serious: No
  Sender: FDA-Public Use
  Company Number: US-SA-SAC20231107000296

PATIENT
  Age: 66 Year
  Sex: Female

DRUGS (1)
  1. DUPIXENT [Suspect]
     Active Substance: DUPILUMAB
     Indication: Nasal polyps
     Dosage: 300 MG, QOW
     Route: 058
     Dates: start: 20230829, end: 20231102

REACTIONS (13)
  - Nasal congestion [Unknown]
  - Nasal obstruction [Unknown]
  - Piloerection [Unknown]
  - Chills [Unknown]
  - Dry mouth [Unknown]
  - Sinus congestion [Unknown]
  - Wheezing [Unknown]
  - Otorrhoea [Unknown]
  - Weight increased [Unknown]
  - Dysphonia [Unknown]
  - Toothache [Recovered/Resolved]
  - Nasopharyngitis [Unknown]
  - Drug ineffective [Unknown]

NARRATIVE: CASE EVENT DATE: 20230101
